FAERS Safety Report 25779231 (Version 2)
Quarter: 2025Q3

REPORT INFORMATION
  Report Type: Spontaneous
  Country: US (occurrence: US)
  Receive Date: 20250909
  Receipt Date: 20250922
  Transmission Date: 20251020
  Serious: No
  Sender: MYLAN
  Company Number: US-MYLANLABS-2025M1075145

PATIENT
  Sex: Female

DRUGS (4)
  1. LEVOTHYROXINE SODIUM [Suspect]
     Active Substance: LEVOTHYROXINE SODIUM
     Indication: Hypothyroidism
     Dosage: 125 MICROGRAM, AM (ONCE A DAY MORNING)
     Dates: end: 202508
  2. LEVOTHYROXINE SODIUM [Suspect]
     Active Substance: LEVOTHYROXINE SODIUM
     Dosage: 125 MICROGRAM, AM (ONCE A DAY MORNING)
     Route: 065
     Dates: end: 202508
  3. LEVOTHYROXINE SODIUM [Suspect]
     Active Substance: LEVOTHYROXINE SODIUM
     Dosage: 125 MICROGRAM, AM (ONCE A DAY MORNING)
     Route: 065
     Dates: end: 202508
  4. LEVOTHYROXINE SODIUM [Suspect]
     Active Substance: LEVOTHYROXINE SODIUM
     Dosage: 125 MICROGRAM, AM (ONCE A DAY MORNING)
     Dates: end: 202508

REACTIONS (9)
  - Cardiac discomfort [Unknown]
  - Hypertension [Unknown]
  - Asthenia [Unknown]
  - Somnolence [Unknown]
  - Weight increased [Unknown]
  - Fatigue [Unknown]
  - Insomnia [Unknown]
  - Drug effect less than expected [Unknown]
  - Product availability issue [Unknown]
